FAERS Safety Report 9238855 (Version 5)
Quarter: 2013Q2

REPORT INFORMATION
  Report Type: Report from Study
  Country: CA (occurrence: CA)
  Receive Date: 20130418
  Receipt Date: 20130522
  Transmission Date: 20140414
  Serious: Yes (Hospitalization)
  Sender: FDA-Public Use
  Company Number: CA-ABBOTT-13P-028-1068632-00

PATIENT
  Sex: Female

DRUGS (4)
  1. HUMIRA [Suspect]
     Indication: RHEUMATOID ARTHRITIS
     Route: 058
     Dates: start: 20120831, end: 20130308
  2. HUMIRA [Suspect]
     Route: 058
     Dates: start: 20130419
  3. PREDNISONE [Suspect]
     Indication: PRODUCT USED FOR UNKNOWN INDICATION
     Dosage: 10MG DAILY DECREASING BY 2.5MG PER WEEK AT TIME OF SHINGLES EPISODE
     Dates: start: 201302
  4. METHOTREXATE [Suspect]
     Indication: PRODUCT USED FOR UNKNOWN INDICATION
     Route: 058
     Dates: end: 2013

REACTIONS (6)
  - Skin lesion [Unknown]
  - Herpes zoster [Recovered/Resolved]
  - Groin pain [Unknown]
  - Herpes zoster [Unknown]
  - Arthralgia [Not Recovered/Not Resolved]
  - Arthralgia [Not Recovered/Not Resolved]
